FAERS Safety Report 5560671-3 (Version None)
Quarter: 2007Q4

REPORT INFORMATION
  Report Type: 
  Country: None (occurrence: None)
  Receive Date: 20071215
  Receipt Date: 20071109
  Transmission Date: 20080405
  Serious: No
  Sender: FDA-Public Use
  Company Number: US-ABBOTT-07P-163-0424884-00

PATIENT
  Sex: Female
  Weight: 54.026 kg

DRUGS (1)
  1. HUMIRA [Suspect]
     Indication: CROHN'S DISEASE
     Route: 058
     Dates: start: 20060901

REACTIONS (3)
  - ERYTHEMA [None]
  - FATIGUE [None]
  - HEADACHE [None]
